FAERS Safety Report 16241121 (Version 2)
Quarter: 2019Q2

REPORT INFORMATION
  Report Type: Spontaneous
  Country: JP (occurrence: JP)
  Receive Date: 20190425
  Receipt Date: 20190429
  Transmission Date: 20190711
  Serious: Yes (Other)
  Sender: FDA-Public Use
  Company Number: JP-STRIDES ARCOLAB LIMITED-2019SP003477

PATIENT
  Age: 68 Year
  Sex: Female

DRUGS (2)
  1. ADEFOVIR [Suspect]
     Active Substance: ADEFOVIR
     Indication: CHRONIC HEPATITIS B
     Dosage: 10 MG PER DAY
     Route: 048
  2. LAMIVUDINE. [Suspect]
     Active Substance: LAMIVUDINE
     Indication: CHRONIC HEPATITIS B
     Dosage: 100 MG PER DAY
     Route: 048

REACTIONS (6)
  - Mitochondrial DNA deletion [Unknown]
  - Atrophy [Unknown]
  - Muscular weakness [Unknown]
  - Hyporeflexia [Unknown]
  - Off label use [Unknown]
  - Myopathy toxic [Unknown]
